FAERS Safety Report 25763628 (Version 1)
Quarter: 2025Q3

REPORT INFORMATION
  Report Type: Spontaneous
  Country: US (occurrence: US)
  Receive Date: 20250905
  Receipt Date: 20250905
  Transmission Date: 20251021
  Serious: No
  Sender: DOMPE FARMACEUTICI
  Company Number: US-FARMAPROD-202410-3582

PATIENT
  Age: 62 Year
  Sex: Female
  Weight: 71.21 kg

DRUGS (5)
  1. OXERVATE [Suspect]
     Active Substance: CENEGERMIN-BKBJ
     Indication: Neurotrophic keratopathy
     Route: 047
     Dates: start: 20241001
  2. OXERVATE [Suspect]
     Active Substance: CENEGERMIN-BKBJ
  3. REFRESH CELLUVISC [Concomitant]
     Active Substance: CARBOXYMETHYLCELLULOSE SODIUM
  4. CEQUA [Concomitant]
     Active Substance: CYCLOSPORINE
  5. GABAPENTIN [Concomitant]
     Active Substance: GABAPENTIN

REACTIONS (2)
  - Intentional product misuse [Not Recovered/Not Resolved]
  - Product administration error [Unknown]

NARRATIVE: CASE EVENT DATE: 20241001
